FAERS Safety Report 21559668 (Version 1)
Quarter: 2022Q4

REPORT INFORMATION
  Report Type: Spontaneous
  Country: US (occurrence: None)
  Receive Date: 20221106
  Receipt Date: 20221106
  Transmission Date: 20230112
  Serious: Yes (Disabling, Other)
  Sender: FDA-Public Use
  Company Number: None

PATIENT
  Age: 34 Year
  Sex: Male
  Weight: 85.5 kg

DRUGS (3)
  1. REGEN-COV [Suspect]
     Active Substance: CASIRIVIMAB\IMDEVIMAB
     Indication: COVID-19 treatment
     Dates: start: 20220101, end: 20220102
  2. ZYRTEC [Concomitant]
     Active Substance: CETIRIZINE HYDROCHLORIDE
  3. TAGAMET [Concomitant]
     Active Substance: CIMETIDINE

REACTIONS (1)
  - Urticaria chronic [None]

NARRATIVE: CASE EVENT DATE: 20220218
